FAERS Safety Report 18138915 (Version 1)
Quarter: 2020Q3

REPORT INFORMATION
  Report Type: Spontaneous
  Country: US (occurrence: US)
  Receive Date: 20200811
  Receipt Date: 20200811
  Transmission Date: 20201103
  Serious: Yes (Disabling, Other)
  Sender: FDA-Public Use
  Company Number: None

PATIENT
  Age: 22 Year
  Sex: Female
  Weight: 99.34 kg

DRUGS (1)
  1. SINGULAIR [Suspect]
     Active Substance: MONTELUKAST SODIUM
     Indication: ASTHMA
     Dosage: ?          QUANTITY:10 MG MILLIGRAM(S);?
     Route: 048
     Dates: start: 20180410

REACTIONS (20)
  - Anxiety [None]
  - Loss of consciousness [None]
  - Personality change [None]
  - Sexual abuse [None]
  - Confusional state [None]
  - Obsessive-compulsive symptom [None]
  - Suicidal ideation [None]
  - Cognitive disorder [None]
  - Depersonalisation/derealisation disorder [None]
  - Insomnia [None]
  - Mental disorder [None]
  - Judgement impaired [None]
  - Depression [None]
  - Sleep terror [None]
  - Memory impairment [None]
  - Amnesia [None]
  - Disorientation [None]
  - Restlessness [None]
  - Impulsive behaviour [None]
  - Mood altered [None]

NARRATIVE: CASE EVENT DATE: 20180718
